FAERS Safety Report 8821618 (Version 3)
Quarter: 2013Q1

REPORT INFORMATION
  Report Type: Spontaneous
  Country: CA (occurrence: CA)
  Receive Date: 20121002
  Receipt Date: 20130107
  Transmission Date: 20140127
  Serious: Yes (Other)
  Sender: FDA-Public Use
  Company Number: CA-CELGENEUS-028-50794-12092760

PATIENT
  Sex: Male

DRUGS (1)
  1. VIDAZA [Suspect]
     Indication: 5Q MINUS SYNDROME
     Dosage: 75 MILLIGRAM/SQ. METER
     Route: 058
     Dates: start: 20110808, end: 20121022

REACTIONS (4)
  - Angina pectoris [Unknown]
  - Thrombocytopenia [Unknown]
  - Anaemia [Unknown]
  - Therapeutic response decreased [Unknown]
